FAERS Safety Report 4648373-9 (Version None)
Quarter: 2005Q2

REPORT INFORMATION
  Report Type: 
  Country: None (occurrence: None)
  Receive Date: 20050427
  Receipt Date: 20050411
  Transmission Date: 20051028
  Serious: Yes (Other)
  Sender: FDA-Public Use
  Company Number: DE_050415653

PATIENT
  Age: 64 Year
  Sex: Female
  Weight: 54 kg

DRUGS (9)
  1. PERGOLIDE MESYLATE [Suspect]
     Indication: PARKINSON'S DISEASE
     Dosage: 2 MG DAY
     Dates: start: 20040601, end: 20050401
  2. CABERGOLINE [Concomitant]
  3. L-DOPA [Concomitant]
  4. NEUROCIL (LEVOMEPROMAZINE MALEATE) [Concomitant]
  5. LEVOTHYROXINE SODIUM [Concomitant]
  6. FOSAMAX [Concomitant]
  7. MUSARIL (TETRAZEPAM) [Concomitant]
  8. IBUPROFEN [Concomitant]
  9. DUROGESIC (FENTANYL) [Concomitant]

REACTIONS (3)
  - AORTIC VALVE SCLEROSIS [None]
  - CARDIAC MURMUR [None]
  - MITRAL VALVE SCLEROSIS [None]
